FAERS Safety Report 4808357-4 (Version None)
Quarter: 2005Q4

REPORT INFORMATION
  Report Type: 
  Country: None (occurrence: None)
  Receive Date: 20051020
  Receipt Date: 20051020
  Transmission Date: 20060501
  Serious: No
  Sender: FDA-Public Use
  Company Number: None

PATIENT
  Age: 61 Year
  Sex: Male

DRUGS (6)
  1. ALTEPLASE [Suspect]
     Indication: CEREBROVASCULAR ACCIDENT
     Dosage: 47MG  (90MIN)  ONCE
  2. ASPIRIN [Concomitant]
  3. RANITIDINE [Concomitant]
  4. SIMVASTATIN [Concomitant]
  5. CITALOPRAM [Concomitant]
  6. LISINOPRIL [Concomitant]

REACTIONS (3)
  - HYPERHIDROSIS [None]
  - HYPOTENSION [None]
  - TACHYCARDIA [None]
